FAERS Safety Report 18122601 (Version 2)
Quarter: 2020Q3

REPORT INFORMATION
  Report Type: Report from Study
  Country: US (occurrence: US)
  Receive Date: 20200807
  Receipt Date: 20200812
  Transmission Date: 20201103
  Serious: Yes (Death)
  Sender: FDA-Public Use
  Company Number: NVSC2020US218779

PATIENT
  Age: 70 Year
  Sex: Female
  Weight: 26.5 kg

DRUGS (1)
  1. LAMPRENE [Suspect]
     Active Substance: CLOFAZIMINE
     Indication: MYCOBACTERIAL INFECTION
     Dosage: 100 MG
     Route: 048
     Dates: start: 20200612, end: 20200722

REACTIONS (3)
  - Failure to thrive [Fatal]
  - Chronic respiratory failure [Fatal]
  - Death [Fatal]

NARRATIVE: CASE EVENT DATE: 20200725
